FAERS Safety Report 20657120 (Version 4)
Quarter: 2022Q4

REPORT INFORMATION
  Report Type: Report from Study
  Country: BR (occurrence: BR)
  Receive Date: 20220331
  Receipt Date: 20221221
  Transmission Date: 20230113
  Serious: Yes (Disabling, Other)
  Sender: FDA-Public Use
  Company Number: BR-ABBVIE-22K-020-4283781-00

PATIENT
  Age: 57 Year
  Sex: Female
  Weight: 72 kg

DRUGS (8)
  1. RINVOQ [Suspect]
     Active Substance: UPADACITINIB
     Indication: Rheumatoid arthritis
     Dosage: 1 TABLET
     Route: 048
     Dates: end: 20220930
  2. RINVOQ [Suspect]
     Active Substance: UPADACITINIB
     Indication: Rheumatoid arthritis
     Dosage: 1 TABLET, FIRST ADMIN DATE: 2022
     Route: 048
  3. RINVOQ [Suspect]
     Active Substance: UPADACITINIB
     Indication: Rheumatoid arthritis
     Dosage: 1 TABLET, FIRST ADMIN DATE: 2022
     Route: 048
     Dates: end: 20221102
  4. MINERALS\VITAMINS [Concomitant]
     Active Substance: MINERALS\VITAMINS
     Indication: Product used for unknown indication
     Route: 065
  5. DIPYRONE\PROMETHAZINE HYDROCHLORIDE [Concomitant]
     Active Substance: DIPYRONE\PROMETHAZINE HYDROCHLORIDE
     Indication: Product used for unknown indication
     Route: 065
  6. CYANOCOBALAMIN\PYRIDOXINE HYDROCHLORIDE\THIAMINE [Concomitant]
     Active Substance: CYANOCOBALAMIN\PYRIDOXINE HYDROCHLORIDE\THIAMINE
     Indication: Spinal pain
     Route: 030
  7. anador [Concomitant]
     Indication: Product used for unknown indication
     Route: 065
  8. KETOCONAZOLE [Suspect]
     Active Substance: KETOCONAZOLE
     Indication: Skin exfoliation
     Route: 061

REACTIONS (40)
  - Musculoskeletal disorder [Unknown]
  - COVID-19 [Recovered/Resolved]
  - Cardiovascular disorder [Unknown]
  - Pain in extremity [Recovering/Resolving]
  - Coordination abnormal [Not Recovered/Not Resolved]
  - Peripheral coldness [Unknown]
  - Rheumatoid arthritis [Unknown]
  - Muscle spasms [Recovering/Resolving]
  - Eye pain [Unknown]
  - Asthenia [Recovered/Resolved]
  - Weight decreased [Recovered/Resolved]
  - Swelling [Recovered/Resolved]
  - Fluid retention [Recovered/Resolved]
  - Renal pain [Unknown]
  - Paraesthesia [Unknown]
  - Hypophagia [Unknown]
  - Confusional state [Recovering/Resolving]
  - Dizziness [Recovered/Resolved]
  - Anxiety [Recovering/Resolving]
  - Panic reaction [Recovering/Resolving]
  - Pain in extremity [Recovering/Resolving]
  - Skin exfoliation [Recovered/Resolved]
  - Feeling hot [Unknown]
  - Head discomfort [Recovering/Resolving]
  - Chest discomfort [Recovering/Resolving]
  - Metabolic surgery [Unknown]
  - Loss of personal independence in daily activities [Unknown]
  - Pain [Unknown]
  - Hand fracture [Unknown]
  - Abdominal pain upper [Unknown]
  - Paraesthesia [Not Recovered/Not Resolved]
  - Limb discomfort [Unknown]
  - Exostosis [Recovering/Resolving]
  - Muscle spasms [Unknown]
  - Muscle spasms [Unknown]
  - Headache [Recovered/Resolved]
  - Agitation [Unknown]
  - Fibromyalgia [Recovering/Resolving]
  - Hypoaesthesia [Not Recovered/Not Resolved]
  - Burning sensation [Recovered/Resolved]

NARRATIVE: CASE EVENT DATE: 20150520
